FAERS Safety Report 24671557 (Version 2)
Quarter: 2024Q4

REPORT INFORMATION
  Report Type: Spontaneous
  Country: DE (occurrence: DE)
  Receive Date: 20241127
  Receipt Date: 20241210
  Transmission Date: 20250115
  Serious: Yes (Other)
  Sender: ELI LILLY AND COMPANY
  Company Number: DE-ELI_LILLY_AND_COMPANY-DE202411010899

PATIENT
  Age: 63 Year
  Sex: Male
  Weight: 74 kg

DRUGS (8)
  1. PEMETREXED [Interacting]
     Active Substance: PEMETREXED
     Indication: Non-small cell lung cancer metastatic
     Dosage: UNK UNK, OTHER (ONCE IN 3 WEEK)
     Route: 065
     Dates: start: 20240321, end: 20240624
  2. PEMETREXED [Interacting]
     Active Substance: PEMETREXED
     Dosage: 960 MG, OTHER (ONCE IN 3 WEEK)
     Route: 065
     Dates: start: 20240829, end: 20240829
  3. PEMETREXED [Interacting]
     Active Substance: PEMETREXED
     Dosage: UNK UNK, OTHER (ONCE IN 3 WEEK)
     Route: 065
     Dates: start: 20241024
  4. PEMBROLIZUMAB [Suspect]
     Active Substance: PEMBROLIZUMAB
     Indication: Metastatic bronchial carcinoma
     Dosage: 200 MG, OTHER (ONCE IN THREE WEEK)
     Route: 065
     Dates: start: 20240205, end: 20240405
  5. PEMBROLIZUMAB [Suspect]
     Active Substance: PEMBROLIZUMAB
     Dosage: 200 MG, OTHER (ONCE IN THREE WEEK)
     Route: 065
     Dates: start: 20240829, end: 20240829
  6. NIVOLUMAB [Suspect]
     Active Substance: NIVOLUMAB
     Indication: Non-small cell lung cancer metastatic
     Dosage: 360 MG, UNKNOWN
     Route: 065
     Dates: start: 20240321, end: 20240624
  7. IPILIMUMAB [Suspect]
     Active Substance: IPILIMUMAB
     Indication: Non-small cell lung cancer metastatic
     Dosage: UNK UNK, UNKNOWN
     Route: 065
     Dates: start: 20240321, end: 20240624
  8. CARBOPLATIN [Suspect]
     Active Substance: CARBOPLATIN
     Indication: Non-small cell lung cancer metastatic
     Dosage: UNK UNK, UNKNOWN
     Route: 065
     Dates: start: 20240321, end: 20240624

REACTIONS (14)
  - Loss of consciousness [Recovered/Resolved]
  - Immune-mediated dermatitis [Recovered/Resolved]
  - Malignant neoplasm progression [Unknown]
  - Hypersensitivity [Recovered/Resolved]
  - Hypotension [Recovered/Resolved]
  - Emphysema [Unknown]
  - Renal cyst [Unknown]
  - Spinal osteoarthritis [Unknown]
  - Prostatic calcification [Unknown]
  - Enostosis [Unknown]
  - Drug interaction [Unknown]
  - Product use issue [Unknown]
  - Tachycardia [Recovered/Resolved]
  - Paraesthesia [Recovered/Resolved]

NARRATIVE: CASE EVENT DATE: 20240101
